FAERS Safety Report 18931229 (Version 1)
Quarter: 2021Q1

REPORT INFORMATION
  Report Type: Spontaneous
  Country: US (occurrence: US)
  Receive Date: 20210223
  Receipt Date: 20210223
  Transmission Date: 20210420
  Serious: No
  Sender: FDA-Public Use
  Company Number: US-JAZZ-JPI-P-034414

PATIENT
  Age: 40 Year
  Sex: Female
  Weight: 58.18 kg

DRUGS (9)
  1. XYREM [Suspect]
     Active Substance: SODIUM OXYBATE
     Indication: CATAPLEXY
     Dosage: 3.75 GRAM, BID
     Route: 048
     Dates: start: 201304
  2. SELEGILINE [Concomitant]
     Active Substance: SELEGILINE
  3. LAMICTAL [Concomitant]
     Active Substance: LAMOTRIGINE
  4. XYREM [Suspect]
     Active Substance: SODIUM OXYBATE
     Dosage: 4.5 GRAM, BID
     Route: 048
  5. VERAPAMIL [Concomitant]
     Active Substance: VERAPAMIL HYDROCHLORIDE
  6. XYREM [Suspect]
     Active Substance: SODIUM OXYBATE
     Indication: NARCOLEPSY
     Route: 048
     Dates: start: 201303, end: 201304
  7. XYREM [Suspect]
     Active Substance: SODIUM OXYBATE
     Dosage: 4.5 GRAM, QD
     Route: 048
  8. ADVAIR (FLUTICASONE PROPIONATE) [Concomitant]
  9. COMBIVENT (IPRATROPIUM BROMIDE/ALBUTEROL SULFATE) [Concomitant]

REACTIONS (10)
  - Seborrhoea [Unknown]
  - Feeling hot [Recovered/Resolved]
  - Antinuclear antibody increased [Unknown]
  - Myalgia [Recovered/Resolved]
  - Pyrexia [Recovered/Resolved]
  - Feeling hot [Recovered/Resolved]
  - Viral rash [Recovered/Resolved]
  - Hypoaesthesia oral [Recovered/Resolved]
  - Alopecia [Not Recovered/Not Resolved]
  - Weight decreased [Not Recovered/Not Resolved]

NARRATIVE: CASE EVENT DATE: 201304
